FAERS Safety Report 8217857-9 (Version None)
Quarter: 2012Q1

REPORT INFORMATION
  Report Type: 
  Country: None (occurrence: None)
  Receive Date: 20120319
  Receipt Date: 20120312
  Transmission Date: 20120608
  Serious: Yes (Hospitalization)
  Sender: FDA-Public Use
  Company Number: US-AMGEN-USASP2012016026

PATIENT
  Age: 52 Year
  Sex: Female

DRUGS (1)
  1. ENBREL [Suspect]
     Indication: RHEUMATOID ARTHRITIS
     Dosage: 50 MG, UNK
     Route: 058
     Dates: start: 19990101

REACTIONS (5)
  - OVERWEIGHT [None]
  - HERNIA [None]
  - GOUT [None]
  - RHEUMATOID ARTHRITIS [None]
  - OESOPHAGEAL DISORDER [None]
